FAERS Safety Report 9041803 (Version 1)
Quarter: 2013Q1

REPORT INFORMATION
  Report Type: Report from Study
  Country: US (occurrence: US)
  Receive Date: 20130129
  Receipt Date: 20130129
  Transmission Date: 20140127
  Serious: No
  Sender: FDA-Public Use
  Company Number: US-ABBOTT-12P-163-0890112-00

PATIENT
  Age: 42 Year
  Sex: Female

DRUGS (11)
  1. HUMIRA 40 MG/0.8 ML PEN [Suspect]
     Indication: PSORIATIC ARTHROPATHY
     Dates: start: 20111218
  2. HYDROCODONE [Concomitant]
     Indication: ARTHRITIS
  3. PREDNISONE [Concomitant]
     Indication: ARTHRITIS
  4. FOLIC ACID [Concomitant]
     Indication: ARTHRITIS
  5. METHOTREXATE [Concomitant]
     Indication: ARTHRITIS
     Dosage: SIX PILLS WEEKLY
  6. CLONAZEPAM [Concomitant]
     Indication: DEPRESSION
  7. PAXIL [Concomitant]
     Indication: DEPRESSION
  8. UNKNOWN MEDICATION [Concomitant]
     Indication: HYPERTENSION
     Dosage: TWO PILLS
  9. WATER PILL [Concomitant]
     Indication: HYPERTENSION
  10. UNKNOWN MEDICATION [Concomitant]
     Indication: CARDIAC DISORDER
  11. BREATHING TREATMENTS [Concomitant]
     Indication: CHRONIC OBSTRUCTIVE PULMONARY DISEASE

REACTIONS (8)
  - Injection site bruising [Not Recovered/Not Resolved]
  - Injection site pain [Not Recovered/Not Resolved]
  - Injection site haemorrhage [Not Recovered/Not Resolved]
  - Nasopharyngitis [Not Recovered/Not Resolved]
  - Rhinorrhoea [Not Recovered/Not Resolved]
  - Oropharyngeal pain [Not Recovered/Not Resolved]
  - Nasal congestion [Not Recovered/Not Resolved]
  - Productive cough [Not Recovered/Not Resolved]
